FAERS Safety Report 7352079-5 (Version None)
Quarter: 2011Q1

REPORT INFORMATION
  Report Type: 
  Country: None (occurrence: None)
  Receive Date: 20110315
  Receipt Date: 20110301
  Transmission Date: 20110831
  Serious: Yes (Hospitalization)
  Sender: FDA-Public Use
  Company Number: US-JNJFOC-NSADSS2003018809

PATIENT
  Sex: Female
  Weight: 62.3 kg

DRUGS (9)
  1. HYDROCODONE [Concomitant]
     Route: 065
  2. CELEXA [Concomitant]
     Route: 065
  3. DURAGESIC-50 [Concomitant]
     Route: 062
  4. DOXORUBICIN HCL [Suspect]
     Indication: B-CELL LYMPHOMA
     Route: 041
     Dates: start: 20020927, end: 20030110
  5. PROTONIX [Concomitant]
     Route: 065
  6. IMIPRAMINE [Concomitant]
     Route: 065
  7. STOMATOLOGICALS, MOUTH PREPARATIONS [Concomitant]
     Route: 065
  8. RITUXAN [Suspect]
     Indication: B-CELL LYMPHOMA
     Route: 041
     Dates: start: 20020925
  9. SYNTHROID [Concomitant]
     Route: 065

REACTIONS (5)
  - DYSPNOEA [None]
  - ERYTHEMA MULTIFORME [None]
  - PAIN [None]
  - PYREXIA [None]
  - HYPOXIA [None]
